FAERS Safety Report 7646491-4 (Version None)
Quarter: 2011Q3

REPORT INFORMATION
  Report Type: 
  Country: None (occurrence: None)
  Receive Date: 20110801
  Receipt Date: 20110722
  Transmission Date: 20111222
  Serious: No
  Sender: FDA-Public Use
  Company Number: US-JNJFOC-20110710805

PATIENT
  Age: 11 Year
  Sex: Male

DRUGS (3)
  1. PROZAC [Concomitant]
     Route: 065
  2. INVEGA [Suspect]
     Indication: PRODUCT USED FOR UNKNOWN INDICATION
     Route: 048
     Dates: end: 20110101
  3. RISPERDAL [Concomitant]
     Indication: AUTISM
     Route: 048
     Dates: start: 20110715

REACTIONS (1)
  - ERECTION INCREASED [None]
